FAERS Safety Report 16915932 (Version 1)
Quarter: 2019Q4

REPORT INFORMATION
  Report Type: Spontaneous
  Country: GB (occurrence: GB)
  Receive Date: 20191014
  Receipt Date: 20191014
  Transmission Date: 20200122
  Serious: Yes (Hospitalization)
  Sender: FDA-Public Use
  Company Number: GB-MYLANLABS-2019M1096292

PATIENT
  Age: 80 Year
  Sex: Female

DRUGS (12)
  1. METFORMIN [Concomitant]
     Active Substance: METFORMIN HYDROCHLORIDE
  2. CEFALEXIN [Concomitant]
     Active Substance: CEPHALEXIN
  3. EDOXABAN [Concomitant]
     Active Substance: EDOXABAN TOSYLATE
  4. NYSTATIN. [Concomitant]
     Active Substance: NYSTATIN
  5. NITRAZEPAM [Concomitant]
     Active Substance: NITRAZEPAM
  6. PARACETAMOL [Concomitant]
     Active Substance: ACETAMINOPHEN
  7. BUMETANIDE. [Concomitant]
     Active Substance: BUMETANIDE
  8. LOSARTAN. [Suspect]
     Active Substance: LOSARTAN
     Indication: ESSENTIAL HYPERTENSION
     Dosage: IN THE MORNING
     Route: 048
     Dates: start: 20180701, end: 20190606
  9. CASSIA ACUTIFOLIA [Concomitant]
  10. SIMVASTATIN. [Concomitant]
     Active Substance: SIMVASTATIN
  11. MIRABEGRON [Concomitant]
     Active Substance: MIRABEGRON
  12. QUININE SULFATE. [Concomitant]
     Active Substance: QUININE SULFATE

REACTIONS (3)
  - Incorrect dose administered [Unknown]
  - Orthostatic hypotension [Recovered/Resolved]
  - Aortic stenosis [Unknown]

NARRATIVE: CASE EVENT DATE: 20190604
